FAERS Safety Report 18359370 (Version 1)
Quarter: 2020Q4

REPORT INFORMATION
  Report Type: Spontaneous
  Country: US (occurrence: US)
  Receive Date: 20201006
  Receipt Date: 20201006
  Transmission Date: 20210114
  Serious: Yes (Hospitalization)
  Sender: FDA-Public Use
  Company Number: None

PATIENT
  Age: 49 Year
  Sex: Female

DRUGS (1)
  1. DIMETHYL FUM OR CAP 240MG (DIMETHYL FUMARATE) [Suspect]
     Active Substance: DIMETHYL FUMARATE
     Route: 048

REACTIONS (4)
  - Speech disorder [None]
  - Dizziness [None]
  - Gait inability [None]
  - Therapy interrupted [None]

NARRATIVE: CASE EVENT DATE: 20200912
